FAERS Safety Report 22186367 (Version 1)
Quarter: 2023Q2

REPORT INFORMATION
  Report Type: Spontaneous
  Country: US (occurrence: None)
  Receive Date: 20230406
  Receipt Date: 20230406
  Transmission Date: 20230722
  Serious: Yes (Other)
  Sender: FDA-Public Use
  Company Number: None

PATIENT
  Age: 45 Year
  Sex: Female

DRUGS (2)
  1. OCREVUS [Suspect]
     Active Substance: OCRELIZUMAB
     Indication: Multiple sclerosis
     Dosage: OTHER FREQUENCY : Q 6 MO;?
     Route: 042
     Dates: start: 202002
  2. KESIMPTA [Suspect]
     Active Substance: OFATUMUMAB
     Indication: Multiple sclerosis
     Dosage: OTHER FREQUENCY : Q 28 DAYS;?
     Route: 058
     Dates: start: 202207, end: 202304

REACTIONS (2)
  - HER2 positive breast cancer [None]
  - Therapy cessation [None]

NARRATIVE: CASE EVENT DATE: 20230204
